FAERS Safety Report 10159627 (Version 1)
Quarter: 2014Q2

REPORT INFORMATION
  Report Type: Report from Study
  Country: BR (occurrence: BR)
  Receive Date: 20140508
  Receipt Date: 20140508
  Transmission Date: 20141212
  Serious: Yes (Other)
  Sender: FDA-Public Use
  Company Number: PHHY2014BR054484

PATIENT
  Sex: Female

DRUGS (6)
  1. TRILEPTAL [Suspect]
     Indication: PARKINSON^S DISEASE
     Dosage: 1 DF, (300 MG) NIGHT
     Route: 048
  2. TRILEPTAL [Suspect]
     Indication: PETIT MAL EPILEPSY
     Dosage: 1 DF, (300 MG) NIGHT
     Route: 048
  3. TRILEPTAL [Suspect]
     Dosage: 1 DF, (300 MG) NIGHT
     Route: 048
  4. PROLOPA [Concomitant]
     Indication: PARKINSON^S DISEASE
     Dosage: UNK UKN, UNK
  5. SIFROL [Concomitant]
     Indication: PARKINSON^S DISEASE
     Dosage: UNK UKN, UNK
  6. RIVOTRIL [Concomitant]
     Indication: SEDATIVE THERAPY
     Dosage: UNK UKN, UNK

REACTIONS (13)
  - Petit mal epilepsy [Recovering/Resolving]
  - Single functional kidney [Recovering/Resolving]
  - Cholelithiasis [Recovering/Resolving]
  - Urinary tract infection [Recovering/Resolving]
  - Hearing impaired [Recovering/Resolving]
  - Micturition disorder [Recovering/Resolving]
  - Renal disorder [Recovering/Resolving]
  - Agitation [Recovering/Resolving]
  - Fall [Recovering/Resolving]
  - Visual impairment [Recovering/Resolving]
  - Tremor [Recovering/Resolving]
  - Drug prescribing error [Unknown]
  - Wrong technique in drug usage process [Unknown]
